FAERS Safety Report 9195949 (Version 1)
Quarter: 2013Q1

REPORT INFORMATION
  Report Type: Spontaneous
  Country: US (occurrence: None)
  Receive Date: 20120705
  Receipt Date: 20120705
  Transmission Date: 20140127
  Serious: Yes (Hospitalization, Disabling)
  Sender: FDA-Public Use
  Company Number: US-CYPR-2012-000043

PATIENT
  Age: 54 Year
  Sex: Male
  Weight: 126.1 kg

DRUGS (2)
  1. CLOPIDOGREL [Suspect]
     Indication: ANTIPLATELET THERAPY
     Dosage: (75 MG, ORAL) . (75 MG ORAL)
     Route: 048
     Dates: start: 20120503, end: 20120518
  2. ASPRIN [Suspect]
     Indication: CORONARY ARTERY DISEASE
     Route: 048
     Dates: start: 20100423

REACTIONS (1)
  - Renal failure chronic [None]
